FAERS Safety Report 4786097-8 (Version None)
Quarter: 2005Q4

REPORT INFORMATION
  Report Type: 
  Country: None (occurrence: None)
  Receive Date: 20051003
  Receipt Date: 20051003
  Transmission Date: 20060501
  Serious: Yes (Life-Threatening)
  Sender: FDA-Public Use
  Company Number: None

PATIENT
  Age: 65 Year
  Sex: Male
  Weight: 73 kg

DRUGS (15)
  1. CISPLATIN [Suspect]
     Indication: OESOPHAGEAL CANCER METASTATIC
     Dosage: 25 IV
     Route: 042
     Dates: start: 20050623, end: 20050913
  2. IRINOTECAN HCL [Suspect]
     Indication: OESOPHAGEAL CANCER METASTATIC
     Dosage: 65 IV
     Route: 042
     Dates: start: 20050623, end: 20050913
  3. CAPECITABINE (MG/M2) D1-14 OF 21-DAY CYCLE [Suspect]
     Indication: OESOPHAGEAL CANCER METASTATIC
     Dosage: 1400 ORAL
     Route: 048
     Dates: start: 20050624, end: 20050919
  4. ATIVAN [Concomitant]
  5. CIALIS [Concomitant]
  6. COLACE [Concomitant]
  7. COMPAZINE [Concomitant]
  8. LOMOTIL [Concomitant]
  9. MAGIC 10 MOUTHWASH [Concomitant]
  10. MEOPROLOL [Concomitant]
  11. PRILOSEC [Concomitant]
  12. RITALIN [Concomitant]
  13. SENNA [Concomitant]
  14. ZOCOR [Concomitant]
  15. ZOFRAN [Concomitant]

REACTIONS (3)
  - DEEP VEIN THROMBOSIS [None]
  - DIARRHOEA [None]
  - PULMONARY EMBOLISM [None]
